FAERS Safety Report 9468810 (Version 2)
Quarter: 2014Q1

REPORT INFORMATION
  Report Type: Spontaneous
  Country: US (occurrence: US)
  Receive Date: 20130821
  Receipt Date: 20140306
  Transmission Date: 20141002
  Serious: Yes (Hospitalization, Other)
  Sender: FDA-Public Use
  Company Number: US-BAYER-2013-099757

PATIENT
  Age: 25 Year
  Sex: Female
  Weight: 81.63 kg

DRUGS (5)
  1. MIRENA [Suspect]
     Indication: CONTRACEPTION
     Dosage: 20 MCG/24HR, CONT
     Route: 015
     Dates: start: 200909, end: 20110815
  2. MIRENA [Suspect]
     Indication: MENORRHAGIA
  3. HUMALOG [Concomitant]
     Indication: DIABETES MELLITUS
     Dosage: UNK
     Dates: start: 2007
  4. JANUVIA [Concomitant]
     Dosage: 100 MG, UNK
  5. TOPROL [Concomitant]
     Dosage: 25 MG, UNK

REACTIONS (11)
  - Device dislocation [None]
  - Pelvic inflammatory disease [None]
  - Device issue [None]
  - Pelvic pain [None]
  - Abdominal pain lower [None]
  - Injury [None]
  - Pain [None]
  - Ovarian cyst [None]
  - Emotional distress [None]
  - Anxiety [None]
  - Stress [None]
